FAERS Safety Report 7549087-8 (Version None)
Quarter: 2011Q2

REPORT INFORMATION
  Report Type: 
  Country: None (occurrence: None)
  Receive Date: 20110615
  Receipt Date: 20110531
  Transmission Date: 20111010
  Serious: Yes (Hospitalization, Other)
  Sender: FDA-Public Use
  Company Number: IT-JNJFOC-20100706901

PATIENT
  Sex: Male
  Weight: 82 kg

DRUGS (3)
  1. LIMPIDEX [Concomitant]
     Route: 048
     Dates: start: 20100101, end: 20100202
  2. REMICADE [Suspect]
     Indication: COLITIS ULCERATIVE
     Route: 042
     Dates: start: 20080430, end: 20090812
  3. METFORMIN HCL [Concomitant]
     Indication: DIABETES MELLITUS
     Route: 048
     Dates: start: 20050101

REACTIONS (2)
  - COLITIS ULCERATIVE [None]
  - COLON DYSPLASIA [None]
